FAERS Safety Report 20910482 (Version 2)
Quarter: 2022Q2

REPORT INFORMATION
  Report Type: Spontaneous
  Country: US (occurrence: US)
  Receive Date: 20220603
  Receipt Date: 20220613
  Transmission Date: 20220721
  Serious: Yes (Other)
  Sender: FDA-Public Use
  Company Number: US-BAYER-2022A073256

PATIENT
  Age: 80 Year
  Sex: Male

DRUGS (1)
  1. CIPROFLOXACIN [Suspect]
     Active Substance: CIPROFLOXACIN
     Dosage: 250 MG, BID
     Route: 048

REACTIONS (7)
  - Tendon rupture [Unknown]
  - Arthralgia [Unknown]
  - Fall [Unknown]
  - Ecchymosis [Unknown]
  - Injury [Unknown]
  - Wheelchair user [Unknown]
  - Loss of personal independence in daily activities [Unknown]
